FAERS Safety Report 4301127-5 (Version None)
Quarter: 2004Q1

REPORT INFORMATION
  Report Type: 
  Country: None (occurrence: None)
  Receive Date: 20040219
  Receipt Date: 20040213
  Transmission Date: 20041129
  Serious: Yes (Hospitalization)
  Sender: FDA-Public Use
  Company Number: RB-508-2004

PATIENT
  Age: 1 Day
  Sex: Male

DRUGS (1)
  1. BUPRENORPHINE HYDROCHLORIDE [Suspect]
     Indication: DRUG ABUSER
     Dosage: 8 MG QD
     Dates: start: 19960215, end: 19970625

REACTIONS (5)
  - APGAR SCORE LOW [None]
  - DRUG WITHDRAWAL SYNDROME NEONATAL [None]
  - MATERNAL DRUGS AFFECTING FOETUS [None]
  - PSYCHOMOTOR HYPERACTIVITY [None]
  - SPEECH DISORDER DEVELOPMENTAL [None]
